FAERS Safety Report 4722559-7 (Version None)
Quarter: 2005Q3

REPORT INFORMATION
  Report Type: 
  Country: None (occurrence: None)
  Receive Date: 20050722
  Receipt Date: 20050711
  Transmission Date: 20060218
  Serious: Yes (Other)
  Sender: FDA-Public Use
  Company Number: PHHO2005CA11023

PATIENT
  Age: 43 Year
  Sex: Female

DRUGS (1)
  1. DIOVAN HCT [Suspect]
     Dosage: 160 VALS - 12.5 HCTZ MG/DAY
     Dates: start: 20050601, end: 20050708

REACTIONS (3)
  - OROPHARYNGEAL SWELLING [None]
  - SWOLLEN TONGUE [None]
  - TONSILLAR DISORDER [None]
